FAERS Safety Report 16011451 (Version 1)
Quarter: 2019Q1

REPORT INFORMATION
  Report Type: Spontaneous
  Country: ES (occurrence: ES)
  Receive Date: 20190227
  Receipt Date: 20190227
  Transmission Date: 20190418
  Serious: Yes (Other)
  Sender: FDA-Public Use
  Company Number: PHHY2019ES032646

PATIENT
  Age: 50 Year
  Sex: Male

DRUGS (2)
  1. NILOTINIB [Suspect]
     Active Substance: NILOTINIB
     Indication: CHRONIC MYELOID LEUKAEMIA
     Dosage: 600 MG, BID
     Route: 065
  2. NILOTINIB [Suspect]
     Active Substance: NILOTINIB
     Dosage: 400 MG, BID
     Route: 065
     Dates: start: 20190219

REACTIONS (3)
  - Ototoxicity [Not Recovered/Not Resolved]
  - Hepatotoxicity [Unknown]
  - Lipase increased [Not Recovered/Not Resolved]

NARRATIVE: CASE EVENT DATE: 20190204
